FAERS Safety Report 9779619 (Version 1)
Quarter: 2013Q4

REPORT INFORMATION
  Report Type: Report from Study
  Country: US (occurrence: US)
  Receive Date: 20131223
  Receipt Date: 20131223
  Transmission Date: 20140711
  Serious: Yes (Other)
  Sender: FDA-Public Use
  Company Number: US-UCBSA-106701

PATIENT
  Sex: 0

DRUGS (1)
  1. LACOSAMIDE [Suspect]

REACTIONS (1)
  - Convulsion [Unknown]
